FAERS Safety Report 19739029 (Version 1)
Quarter: 2021Q3

REPORT INFORMATION
  Report Type: Spontaneous
  Country: US (occurrence: US)
  Receive Date: 20210823
  Receipt Date: 20210823
  Transmission Date: 20211014
  Serious: No
  Sender: FDA-Public Use
  Company Number: US-PFIZER INC-202101007798

PATIENT
  Age: 69 Year
  Sex: Female
  Weight: 53.52 kg

DRUGS (2)
  1. CLINDAMYCIN PHOSPHATE. [Suspect]
     Active Substance: CLINDAMYCIN PHOSPHATE
     Dosage: ONE APPLICATOR INTO THE VAGINA EVERY NIGHT FOR SEVEN NIGHTS
     Route: 067
     Dates: start: 20210803
  2. CLINDAMYCIN PHOSPHATE. [Suspect]
     Active Substance: CLINDAMYCIN PHOSPHATE
     Indication: BACTERIAL VAGINOSIS
     Dosage: ONE APPLICATOR INTO THE VAGINA EVERY NIGHT FOR SEVEN NIGHTS
     Route: 067
     Dates: start: 2021, end: 2021

REACTIONS (3)
  - Drug ineffective [Unknown]
  - Circumstance or information capable of leading to medication error [Unknown]
  - Product quality issue [Unknown]

NARRATIVE: CASE EVENT DATE: 20210803
